FAERS Safety Report 4331151-8 (Version None)
Quarter: 2004Q2

REPORT INFORMATION
  Report Type: 
  Country: None (occurrence: None)
  Receive Date: 20040405
  Receipt Date: 20040308
  Transmission Date: 20050107
  Serious: Yes (Death, Other)
  Sender: FDA-Public Use
  Company Number: PHFR2004GB01270

PATIENT
  Age: 57 Year
  Sex: Female

DRUGS (10)
  1. ZOMETA [Suspect]
     Indication: HYPERCALCAEMIA
     Dosage: 4MG SINGLE DOSE
     Route: 042
     Dates: start: 20040209
  2. CLODRONIC ACID [Concomitant]
     Dosage: 1600 MG, QD
     Route: 048
     Dates: end: 20040208
  3. ANASTROZOLE [Concomitant]
     Dosage: 1MG/DAY
     Route: 048
  4. DICLOFENAC SODIUM [Concomitant]
     Dosage: 50 MG, TID
     Route: 048
     Dates: end: 20040209
  5. OLMESARTAN MEDOXOMIL [Concomitant]
     Dosage: 20 MG, QD
     Route: 048
     Dates: end: 20040212
  6. SEVREDOL [Concomitant]
     Dosage: 5 MG, PRN
     Route: 048
     Dates: start: 20040211, end: 20040218
  7. LANSOPRAZOLE [Concomitant]
     Dosage: 30 MG, QD
     Route: 048
  8. CO-PROXAMOL [Concomitant]
     Dosage: 2 UKN, TID
     Route: 048
  9. ROFECOXIB [Concomitant]
     Dosage: 25 MG, QD
     Route: 048
     Dates: start: 20040209, end: 20040218
  10. DEXAMETHASONE [Concomitant]
     Dosage: 4 MG, QD
     Route: 048
     Dates: start: 20040212, end: 20040218

REACTIONS (5)
  - BLOOD ALBUMIN DECREASED [None]
  - BLOOD CREATININE INCREASED [None]
  - BLOOD UREA INCREASED [None]
  - BREAST CANCER METASTATIC [None]
  - RENAL FAILURE [None]
